FAERS Safety Report 6326198-6 (Version None)
Quarter: 2009Q3

REPORT INFORMATION
  Report Type: 
  Country: None (occurrence: None)
  Receive Date: 20090824
  Receipt Date: 20090810
  Transmission Date: 20100115
  Serious: Yes (Hospitalization, Other)
  Sender: FDA-Public Use
  Company Number: GB-MYLANLABS-2009S1002388

PATIENT
  Age: 39 Year
  Sex: Female

DRUGS (4)
  1. CARBAMAZEPINE [Suspect]
     Indication: CONVULSION
  2. TOPIRAMATE [Suspect]
     Indication: GRAND MAL CONVULSION
  3. TOPIRAMATE [Concomitant]
  4. VALPROATE SODIUM [Concomitant]
     Indication: CONVULSION

REACTIONS (5)
  - DEPRESSION [None]
  - INSOMNIA [None]
  - PSYCHOTIC DISORDER [None]
  - STATUS EPILEPTICUS [None]
  - WITHDRAWAL SYNDROME [None]
